FAERS Safety Report 6505631-0 (Version None)
Quarter: 2009Q4

REPORT INFORMATION
  Report Type: 
  Country: None (occurrence: None)
  Receive Date: 20091218
  Receipt Date: 20091208
  Transmission Date: 20100525
  Serious: Yes (Hospitalization)
  Sender: FDA-Public Use
  Company Number: GXKR2009CH13246

PATIENT
  Age: 28 Year
  Sex: Female

DRUGS (15)
  1. FLUOXETINE HYDROCHLORIDE (NGX) [Suspect]
     Dosage: 20 MG, QD
     Route: 048
     Dates: start: 20060101
  2. AMOXICILLIN [Suspect]
     Indication: GASTROOESOPHAGEAL REFLUX DISEASE
     Dosage: 1 G, BID
     Route: 048
     Dates: start: 20070822, end: 20070828
  3. AMOXICILLIN [Suspect]
     Indication: OESOPHAGITIS
  4. LISITRIL (NGX) [Suspect]
     Indication: ESSENTIAL HYPERTENSION
     Dosage: 5 MG, QD
     Route: 048
     Dates: start: 20070901, end: 20091101
  5. CLARITHROMYCIN [Suspect]
     Indication: GASTROOESOPHAGEAL REFLUX DISEASE
     Dosage: 500 MG, BID
     Route: 048
     Dates: start: 20070822, end: 20070828
  6. CLARITHROMYCIN [Suspect]
     Indication: OESOPHAGITIS
  7. NEXIUM [Suspect]
     Indication: GASTROOESOPHAGEAL REFLUX DISEASE
     Dosage: 20 MG, QD
     Route: 048
     Dates: start: 20070305
  8. NEXIUM [Suspect]
     Indication: OESOPHAGITIS
  9. BELOC ZOK [Concomitant]
     Indication: ESSENTIAL HYPERTENSION
     Dosage: 50 MG, QD
     Route: 048
     Dates: start: 20070901
  10. AMLODIPINE BESYLATE [Concomitant]
     Indication: ESSENTIAL HYPERTENSION
     Dosage: UNK
     Route: 048
     Dates: start: 20070901, end: 20080101
  11. SEVICAR [Concomitant]
     Indication: ESSENTIAL HYPERTENSION
     Dosage: UNK
     Route: 065
     Dates: start: 20080101, end: 20091101
  12. SIRDALUD [Concomitant]
     Indication: HEMIPLEGIA
     Dosage: 12 MG, BID
     Route: 048
     Dates: start: 20040101
  13. ASPIRIN [Concomitant]
     Indication: CEREBRAL INFARCTION
     Dosage: UNK
     Route: 065
     Dates: start: 20040101
  14. TEMESTA [Concomitant]
     Dosage: 1 MG, QD
     Route: 048
  15. LEXOTANIL [Concomitant]
     Dosage: UNK
     Route: 048

REACTIONS (3)
  - CHOLECYSTECTOMY [None]
  - PANCREATITIS [None]
  - PANCREATITIS ACUTE [None]
